FAERS Safety Report 7853618-8 (Version None)
Quarter: 2011Q4

REPORT INFORMATION
  Report Type: 
  Country: None (occurrence: None)
  Receive Date: 20111026
  Receipt Date: 20111020
  Transmission Date: 20120403
  Serious: Yes (Other)
  Sender: FDA-Public Use
  Company Number: AU-PFIZER INC-2011254126

PATIENT
  Age: 81 Year
  Sex: Female

DRUGS (2)
  1. XALATAN [Suspect]
  2. METOPROLOL TARTRATE [Concomitant]

REACTIONS (5)
  - CATARACT [None]
  - VISION BLURRED [None]
  - OCULAR DISCOMFORT [None]
  - FOREIGN BODY SENSATION IN EYES [None]
  - DRY EYE [None]
